FAERS Safety Report 5044091-6 (Version None)
Quarter: 2006Q2

REPORT INFORMATION
  Report Type: 
  Country: None (occurrence: None)
  Receive Date: 20060601
  Receipt Date: 20060330
  Transmission Date: 20061013
  Serious: No
  Sender: FDA-Public Use
  Company Number: US200604000152

PATIENT
  Sex: Female

DRUGS (2)
  1. CYMBALTA [Suspect]
     Indication: NEURALGIA
     Dosage: 30 MG
  2. NEURONTIN [Concomitant]

REACTIONS (5)
  - AGITATION [None]
  - ANXIETY [None]
  - CONVERSION DISORDER [None]
  - DRUG INTERACTION [None]
  - NAUSEA [None]
